FAERS Safety Report 7705498-9 (Version None)
Quarter: 2011Q3

REPORT INFORMATION
  Report Type: 
  Country: None (occurrence: None)
  Receive Date: 20110818
  Receipt Date: 20110805
  Transmission Date: 20111222
  Serious: Yes (Life-Threatening)
  Sender: FDA-Public Use
  Company Number: 2011MA011646

PATIENT
  Age: 59 Year
  Sex: Female

DRUGS (5)
  1. ASS-ISIS [Concomitant]
  2. METFORMIN HYDROCHLORIDE [Suspect]
     Indication: DIABETES MELLITUS
     Dosage: 1000 MG; QD; PO
     Route: 048
  3. SIMAVASTATIN [Concomitant]
  4. AMLODIPINE [Concomitant]
  5. RAMIPRIL [Concomitant]

REACTIONS (2)
  - RENAL FAILURE ACUTE [None]
  - LACTIC ACIDOSIS [None]
